FAERS Safety Report 9605296 (Version 2)
Quarter: 2013Q4

REPORT INFORMATION
  Report Type: Spontaneous
  Country: US (occurrence: US)
  Receive Date: 20131008
  Receipt Date: 20131107
  Transmission Date: 20140711
  Serious: Yes (Other)
  Sender: FDA-Public Use
  Company Number: US-TEVA-436720USA

PATIENT
  Age: 27 Year
  Sex: Female
  Weight: 92.16 kg

DRUGS (2)
  1. PARAGARD 380A [Suspect]
     Indication: CONTRACEPTION
     Route: 015
     Dates: start: 20130814, end: 20131002
  2. VASOPRIL [Concomitant]

REACTIONS (5)
  - Device dislocation [Recovered/Resolved]
  - Bacterial vaginosis [Recovered/Resolved]
  - Muscle spasms [Recovered/Resolved]
  - Oligomenorrhoea [Unknown]
  - Device expulsion [Recovered/Resolved]
